FAERS Safety Report 25330253 (Version 3)
Quarter: 2025Q2

REPORT INFORMATION
  Report Type: Report from Study
  Country: US (occurrence: US)
  Receive Date: 20250519
  Receipt Date: 20250625
  Transmission Date: 20250716
  Serious: Yes (Other)
  Sender: SUNOVION
  Company Number: US-SMPA-2025SPA005709

PATIENT

DRUGS (4)
  1. ORGOVYX [Suspect]
     Active Substance: RELUGOLIX
     Indication: Prostate cancer
     Route: 048
     Dates: start: 20250328, end: 20250328
  2. ORGOVYX [Suspect]
     Active Substance: RELUGOLIX
     Dosage: 120 MG, QD
     Route: 048
     Dates: start: 20250329
  3. METFORMIN [Suspect]
     Active Substance: METFORMIN HYDROCHLORIDE
     Indication: Product used for unknown indication
     Route: 065
  4. JARDIANCE [Concomitant]
     Active Substance: EMPAGLIFLOZIN
     Route: 065

REACTIONS (14)
  - Diabetes mellitus [Unknown]
  - Tooth extraction [Unknown]
  - Nasopharyngitis [Unknown]
  - Sneezing [Unknown]
  - Administration site pain [Unknown]
  - Memory impairment [Unknown]
  - Feeling of body temperature change [Unknown]
  - Peripheral swelling [Unknown]
  - Nocturia [Unknown]
  - Pain [Unknown]
  - Hot flush [Unknown]
  - Insomnia [Unknown]
  - Incorrect dose administered [Unknown]
  - Inappropriate schedule of product administration [Unknown]
